FAERS Safety Report 5999704-9 (Version None)
Quarter: 2008Q4

REPORT INFORMATION
  Report Type: 
  Country: None (occurrence: None)
  Receive Date: 20081215
  Receipt Date: 20081210
  Transmission Date: 20090506
  Serious: Yes (Other)
  Sender: FDA-Public Use
  Company Number: US-ASTRAZENECA-2008AC03133

PATIENT
  Age: 28 Year
  Sex: Male

DRUGS (5)
  1. PROPOFOL [Suspect]
     Indication: SEDATION
     Dosage: 50-75 UG/KG/MIN INTRAOPERATIVELY
     Route: 042
  2. PROPOFOL [Suspect]
     Indication: INTRACRANIAL PRESSURE INCREASED
     Dosage: 50-75 UG/KG/MIN INTRAOPERATIVELY
     Route: 042
  3. PROPOFOL [Suspect]
     Dosage: 95-125 UG/KG/MIN IN ICU
     Route: 042
  4. PROPOFOL [Suspect]
     Dosage: 95-125 UG/KG/MIN IN ICU
     Route: 042
  5. PHENYLEPHRINE [Suspect]
     Indication: CEREBRAL HYPOPERFUSION
     Dosage: 0.8-8 UG/KG/MIN
     Route: 042

REACTIONS (5)
  - EJECTION FRACTION DECREASED [None]
  - ELECTROCARDIOGRAM QT PROLONGED [None]
  - ELECTROCARDIOGRAM T WAVE INVERSION [None]
  - METABOLIC ACIDOSIS [None]
  - PROPOFOL INFUSION SYNDROME [None]
